FAERS Safety Report 5807177-1 (Version None)
Quarter: 2008Q3

REPORT INFORMATION
  Report Type: 
  Country: None (occurrence: None)
  Receive Date: 20080711
  Receipt Date: 20080707
  Transmission Date: 20090109
  Serious: Yes (Hospitalization, Other)
  Sender: FDA-Public Use
  Company Number: A0736740A

PATIENT
  Age: 55 Year
  Sex: Female

DRUGS (1)
  1. ZYBAN [Suspect]
     Dosage: 150MG PER DAY
     Route: 048
     Dates: start: 20080323, end: 20080326

REACTIONS (6)
  - ANXIETY [None]
  - ARTERIAL OCCLUSIVE DISEASE [None]
  - CRYING [None]
  - FEAR [None]
  - HEADACHE [None]
  - HYPERTENSION [None]
